FAERS Safety Report 9522828 (Version 2)
Quarter: 2013Q3

REPORT INFORMATION
  Report Type: Report from Study
  Country: US (occurrence: US)
  Receive Date: 20130913
  Receipt Date: 20130913
  Transmission Date: 20140515
  Serious: Yes (Hospitalization, Other)
  Sender: FDA-Public Use
  Company Number: US-PFIZER INC-2011283812

PATIENT
  Age: 51 Year
  Sex: Female
  Weight: 112.2 kg

DRUGS (31)
  1. ENBREL [Suspect]
     Indication: RHEUMATOID ARTHRITIS
     Dosage: 50 MG, QWK
     Route: 058
  2. LIPITOR [Suspect]
     Dosage: 20 MG, QD
     Route: 065
  3. METHOTREXATE SODIUM [Suspect]
     Dosage: UNK
     Route: 065
  4. ULTRAM [Suspect]
     Dosage: UNK
  5. IMURAN [Suspect]
     Dosage: UNK
     Route: 065
  6. CRESTOR [Suspect]
     Dosage: UNK
     Route: 065
  7. ZOCOR [Suspect]
     Dosage: UNK
     Route: 065
  8. TRAZODONE [Suspect]
     Dosage: UNK
     Route: 065
  9. ARAVA [Suspect]
     Dosage: UNK
     Route: 065
  10. UNSPECIFIED INGREDIENT [Suspect]
  11. AMBIEN [Concomitant]
     Dosage: 5 MG, UNK
     Route: 048
  12. LASIX [Concomitant]
     Dosage: 20 MG, UNK
     Route: 048
  13. ULTRACET [Concomitant]
     Indication: PAIN
     Dosage: UNK, 37.5-325
     Route: 048
  14. ULTRACET [Concomitant]
     Dosage: UNK, 37.5-325
  15. COUMADIN [Concomitant]
     Indication: HYPERCOAGULATION
     Dosage: 10 MG, UNK
     Route: 048
  16. COUMADIN [Concomitant]
     Indication: DEEP VEIN THROMBOSIS
     Dosage: 2.5 MG, UNK
  17. COUMADIN [Concomitant]
     Indication: METHYLENETETRAHYDROFOLATE REDUCTASE DEFICIENCY
  18. LYRICA [Concomitant]
     Dosage: 25 MG, UNK
     Route: 048
  19. WELLBUTRIN [Concomitant]
     Dosage: 100 MG, UNK
     Route: 048
  20. CYCLOBENZAPRINE [Concomitant]
     Dosage: 5 MG, UNK
     Route: 048
  21. CELEXA [Concomitant]
     Dosage: 10 MG, UNK
     Route: 048
  22. CALCIUM [Concomitant]
     Dosage: 500 UNK, UNK
     Route: 048
  23. FOLIC ACID [Concomitant]
     Dosage: 5 MG, UNK
     Route: 048
  24. FLEXERIL [Concomitant]
     Dosage: UNK
  25. CYCLOBENZAPRINE HCL [Concomitant]
     Dosage: 10 MG, UNK
     Route: 048
  26. CITALOPRAM HYDROBROMIDE [Concomitant]
     Dosage: 40 MG, QAM
  27. VITAMIN B12 [Concomitant]
     Indication: VITAMIN B12 DEFICIENCY
     Dosage: 1000 MUG, QD
     Route: 048
  28. ZOLPIDEM TARTRATE [Concomitant]
     Dosage: 10 MG, UNK
  29. FUROSEMIDE [Concomitant]
     Dosage: 20 MG, QD
     Route: 048
  30. CITRACAL + D [Concomitant]
     Dosage: UNK, 600-40-500 MG-MG-UNI 2 DAY
  31. PLAQUENIL [Concomitant]
     Dosage: UNK

REACTIONS (42)
  - Local swelling [Unknown]
  - Deep vein thrombosis [Unknown]
  - Hypercoagulation [Unknown]
  - Pneumonia [Unknown]
  - Neutropenia [Unknown]
  - Intervertebral disc degeneration [Unknown]
  - Spinal column stenosis [Unknown]
  - Hypertension [Unknown]
  - Hypergammaglobulinaemia benign monoclonal [Unknown]
  - Candida infection [Recovering/Resolving]
  - White blood cell count decreased [Unknown]
  - Injection site pain [Unknown]
  - Injection site reaction [Unknown]
  - Protein total decreased [Unknown]
  - Weight increased [Unknown]
  - Oropharyngeal pain [Unknown]
  - Cough [Unknown]
  - Hypercholesterolaemia [Unknown]
  - Headache [Unknown]
  - Drug eruption [Unknown]
  - Joint stiffness [Unknown]
  - Stress [Unknown]
  - Insomnia [Unknown]
  - Anxiety [Unknown]
  - Angiopathy [Unknown]
  - Vitamin B12 deficiency [Unknown]
  - Joint swelling [Unknown]
  - Arthralgia [Unknown]
  - Fatigue [Unknown]
  - Pain [Unknown]
  - Lymphocytosis [Unknown]
  - Depression [Unknown]
  - Myalgia [Unknown]
  - Dermatitis [Unknown]
  - Abdominal pain [Unknown]
  - Haematuria [Unknown]
  - Dyspnoea [Unknown]
  - Arthritis [Unknown]
  - Leukopenia [Unknown]
  - Infection [Unknown]
  - Tinea infection [Unknown]
  - Somnolence [Unknown]
